FAERS Safety Report 6640707-9 (Version None)
Quarter: 2010Q1

REPORT INFORMATION
  Report Type: 
  Country: None (occurrence: None)
  Receive Date: 20100318
  Receipt Date: 20100305
  Transmission Date: 20100710
  Serious: Yes (Hospitalization)
  Sender: FDA-Public Use
  Company Number: US-ELI_LILLY_AND_COMPANY-US200911007289

PATIENT
  Sex: Male
  Weight: 108.39 kg

DRUGS (3)
  1. BYETTA [Suspect]
     Dosage: 5 UG, 2/D
     Route: 065
     Dates: start: 20060716, end: 20060821
  2. BYETTA [Suspect]
     Dosage: 10 UG, 2/D
     Dates: start: 20060801, end: 20070906
  3. TYLENOL                                 /SCH/ [Concomitant]
     Indication: HEADACHE
     Dates: start: 19980101

REACTIONS (3)
  - GALLBLADDER DISORDER [None]
  - PANCREATITIS [None]
  - RENAL INJURY [None]
